FAERS Safety Report 14583687 (Version 1)
Quarter: 2018Q1

REPORT INFORMATION
  Report Type: Spontaneous
  Country: US (occurrence: US)
  Receive Date: 20180227
  Receipt Date: 20180227
  Transmission Date: 20180509
  Serious: Yes (Hospitalization, Other)
  Sender: FDA-Public Use
  Company Number: None

PATIENT
  Age: 55 Year
  Sex: Male
  Weight: 74.25 kg

DRUGS (7)
  1. AMBIEN [Concomitant]
     Active Substance: ZOLPIDEM TARTRATE
  2. SUCRALFATE 1 GRAM TABLET [Suspect]
     Active Substance: SUCRALFATE
     Indication: GASTRITIS
     Dosage: ?          QUANTITY:1 TABLET(S);?
     Route: 048
     Dates: start: 20171114, end: 20180112
  3. HUMIRA [Concomitant]
     Active Substance: ADALIMUMAB
  4. MYLANTA [Concomitant]
     Active Substance: ALUMINUM HYDROXIDE\DIMETHICONE\MAGNESIUM HYDROXIDE
  5. NEXIUM [Concomitant]
     Active Substance: ESOMEPRAZOLE MAGNESIUM
  6. PEPCID [Concomitant]
     Active Substance: FAMOTIDINE
  7. PIPTO BISMOL [Concomitant]

REACTIONS (8)
  - Abdominal discomfort [None]
  - Product substitution issue [None]
  - Drug ineffective [None]
  - Abdominal pain upper [None]
  - Apparent death [None]
  - Gastritis [None]
  - Ulcer haemorrhage [None]
  - Chest pain [None]

NARRATIVE: CASE EVENT DATE: 20180112
